FAERS Safety Report 8107224-0 (Version None)
Quarter: 2011Q4

REPORT INFORMATION
  Report Type: 
  Country: None (occurrence: None)
  Receive Date: 20111227
  Receipt Date: 20111128
  Transmission Date: 20120403
  Serious: No
  Sender: FDA-Public Use
  Company Number: PHEH2011US010345

PATIENT
  Age: 37 Year
  Sex: Female
  Weight: 61.2 kg

DRUGS (2)
  1. IBUPROFEN [Concomitant]
  2. GILENYA [Suspect]
     Dosage: 0.5 MG, EVERYDAY, ORAL
     Route: 047

REACTIONS (1)
  - RHINORRHOEA [None]
